FAERS Safety Report 18925714 (Version 2)
Quarter: 2021Q2

REPORT INFORMATION
  Report Type: Spontaneous
  Country: CA (occurrence: CA)
  Receive Date: 20210222
  Receipt Date: 20210416
  Transmission Date: 20210717
  Serious: Yes (Hospitalization)
  Sender: FDA-Public Use
  Company Number: CA-CELLTRION INC.-2017CA010035

PATIENT

DRUGS (9)
  1. INFLECTRA [Suspect]
     Active Substance: INFLIXIMAB-DYYB
     Indication: COLITIS ULCERATIVE
     Dosage: 400 MG, EVERY 8 WEEKS
     Route: 042
     Dates: start: 20170717
  2. CORTISONE [Concomitant]
     Active Substance: CORTISONE
     Dosage: UNK
  3. PREDNISONE. [Concomitant]
     Active Substance: PREDNISONE
     Dosage: UNK
     Dates: end: 2017
  4. INFLECTRA [Suspect]
     Active Substance: INFLIXIMAB-DYYB
     Dosage: UNK
     Dates: start: 20170728, end: 20170728
  5. CALCIUM [Concomitant]
     Active Substance: CALCIUM
     Dosage: UNK
  6. ENTOCORT [Concomitant]
     Active Substance: BUDESONIDE
     Indication: PROSTATE INFECTION
     Dosage: UNK
  7. MEZAVANT [Concomitant]
     Active Substance: MESALAMINE
     Dosage: UNK
  8. PREDNISONE. [Concomitant]
     Active Substance: PREDNISONE
     Dosage: UNK (STOP DATE: 2017)
  9. XARELTO [Concomitant]
     Active Substance: RIVAROXABAN
     Indication: PROSTATE INFECTION
     Dosage: UNK

REACTIONS (3)
  - Pyrexia [Unknown]
  - Abdominal pain [Unknown]
  - Condition aggravated [Unknown]
